FAERS Safety Report 23762026 (Version 1)
Quarter: 2024Q2

REPORT INFORMATION
  Report Type: Report from Study
  Country: KW (occurrence: KW)
  Receive Date: 20240419
  Receipt Date: 20240419
  Transmission Date: 20240716
  Serious: Yes (Hospitalization)
  Sender: FDA-Public Use
  Company Number: KW-002147023-NVSC2024KW019253

PATIENT
  Age: 62 Year
  Sex: Female

DRUGS (2)
  1. KISQALI [Suspect]
     Active Substance: RIBOCICLIB
     Indication: Breast cancer metastatic
     Dosage: 600 MG, QD
     Route: 048
     Dates: start: 20231220, end: 20240401
  2. KISQALI [Suspect]
     Active Substance: RIBOCICLIB
     Dosage: 200 MG (REDUCED DOSE)
     Route: 065
     Dates: start: 20240407

REACTIONS (3)
  - Haemoglobin decreased [Recovered/Resolved]
  - Haemoglobin decreased [Recovering/Resolving]
  - Off label use [Unknown]

NARRATIVE: CASE EVENT DATE: 20240125
